FAERS Safety Report 5278387-X (Version None)
Quarter: 2007Q1

REPORT INFORMATION
  Report Type: 
  Country: None (occurrence: None)
  Receive Date: 20061208
  Receipt Date: 20060918
  Transmission Date: 20070707
  Serious: Yes (Death, Other)
  Sender: FDA-Public Use
  Company Number: USA-2003-0006804

PATIENT
  Age: 38 Year
  Sex: Male
  Weight: 90.7 kg

DRUGS (18)
  1. OXYCONTIN [Suspect]
     Indication: PAIN
     Dosage: UNK, SEE TEXT; ORAL
     Route: 048
     Dates: start: 20000710, end: 20010108
  2. ALCOHOL (ETHANOL) [Suspect]
     Indication: DRUG USE FOR UNKNOWN INDICATION
  3. LORTAB [Concomitant]
  4. PERCOCET [Concomitant]
  5. DURAGESIC-100 [Concomitant]
  6. VICODIN ES [Concomitant]
  7. VIOXX [Concomitant]
  8. AMBIEN [Concomitant]
  9. NORFLEX [Concomitant]
  10. ULTRAM [Concomitant]
  11. HXA 5/500/0.625 MG TAB [Concomitant]
  12. LORAZEPAM [Concomitant]
  13. BIAXIN [Concomitant]
  14. CYCLOBENZAPRINE HCL [Concomitant]
  15. ALPRAZOLAM [Concomitant]
  16. SULFAMETHOXAZOLE [Concomitant]
  17. PAXIL [Concomitant]
  18. LIDOCAINE 'NAF^ [Concomitant]

REACTIONS (15)
  - ARTHRALGIA [None]
  - BACK PAIN [None]
  - CARDIOPULMONARY FAILURE [None]
  - DRUG ABUSER [None]
  - DRUG ADMINISTRATION ERROR [None]
  - DRUG DEPENDENCE [None]
  - DRUG INEFFECTIVE [None]
  - DRUG WITHDRAWAL SYNDROME [None]
  - EMOTIONAL DISTRESS [None]
  - HYPOAESTHESIA [None]
  - MUSCLE SPASMS [None]
  - MUSCULOSKELETAL CHEST PAIN [None]
  - OEDEMA PERIPHERAL [None]
  - OVERDOSE [None]
  - PAIN [None]
